FAERS Safety Report 17167380 (Version 1)
Quarter: 2019Q4

REPORT INFORMATION
  Report Type: Spontaneous
  Country: US (occurrence: US)
  Receive Date: 20191217
  Receipt Date: 20191217
  Transmission Date: 20200122
  Serious: Yes (Other)
  Sender: FDA-Public Use
  Company Number: None

PATIENT
  Age: 71 Year
  Sex: Male
  Weight: 86.4 kg

DRUGS (3)
  1. EYLEA [Suspect]
     Active Substance: AFLIBERCEPT
     Indication: RETINAL OEDEMA
     Dosage: ?          OTHER FREQUENCY:MONTHLY;?
     Route: 057
     Dates: start: 20190717, end: 20191025
  2. EYLEA [Suspect]
     Active Substance: AFLIBERCEPT
     Indication: RETINAL SCAR
     Dosage: ?          OTHER FREQUENCY:MONTHLY;?
     Route: 057
     Dates: start: 20190717, end: 20191025
  3. LIPITOR [Suspect]
     Active Substance: ATORVASTATIN CALCIUM
     Dates: start: 20100101, end: 20190918

REACTIONS (4)
  - Polyarthritis [None]
  - Myalgia [None]
  - Blood creatine phosphokinase increased [None]
  - Palindromic rheumatism [None]

NARRATIVE: CASE EVENT DATE: 20190915
